FAERS Safety Report 21167055 (Version 1)
Quarter: 2022Q3

REPORT INFORMATION
  Report Type: Spontaneous
  Country: CN (occurrence: CN)
  Receive Date: 20220803
  Receipt Date: 20220803
  Transmission Date: 20221027
  Serious: Yes (Disabling, Other)
  Sender: FDA-Public Use
  Company Number: CN-PFIZER INC-PV202200034706

PATIENT
  Age: 71 Year
  Sex: Male
  Weight: 70.1 kg

DRUGS (2)
  1. METHOTREXATE SODIUM [Suspect]
     Active Substance: METHOTREXATE SODIUM
     Indication: Non-Hodgkin^s lymphoma
     Dosage: 6. G, 1X/DAY
     Route: 041
     Dates: start: 20220722, end: 20220722
  2. GLUTATHIONE [Concomitant]
     Active Substance: GLUTATHIONE
     Indication: Hepatobiliary disorder prophylaxis
     Dosage: 2.4 G, 1X/DAY WITH 0.9% SODIUM CHLORIDE INJECTION 100ML
     Route: 041
     Dates: start: 20220722

REACTIONS (3)
  - Liver injury [Recovering/Resolving]
  - Alanine aminotransferase increased [Recovering/Resolving]
  - Aspartate aminotransferase increased [Recovering/Resolving]

NARRATIVE: CASE EVENT DATE: 20220725
